FAERS Safety Report 18275618 (Version 2)
Quarter: 2021Q2

REPORT INFORMATION
  Report Type: Spontaneous
  Country: JP (occurrence: JP)
  Receive Date: 20200916
  Receipt Date: 20210409
  Transmission Date: 20210717
  Serious: Yes (Other)
  Sender: FDA-Public Use
  Company Number: JP-PURDUE-USA-2020-0166466

PATIENT
  Age: 78 Year
  Sex: Female

DRUGS (16)
  1. MS CONTIN [Suspect]
     Active Substance: MORPHINE SULFATE
     Dosage: 20 MG, DAILY
     Route: 048
     Dates: start: 20200602, end: 20200604
  2. OPSO [Suspect]
     Active Substance: MORPHINE HYDROCHLORIDE
     Indication: DYSPNOEA
     Dosage: 20 MG, DAILY
     Route: 048
     Dates: start: 20200605, end: 20200608
  3. LANSOPRAZOLE. [Concomitant]
     Active Substance: LANSOPRAZOLE
  4. THYRADIN?S [Concomitant]
     Active Substance: LEVOTHYROXINE
  5. DENOTAS [Concomitant]
     Active Substance: CALCIUM CARBONATE\CHOLECALCIFEROL\MAGNESIUM CARBONATE
  6. MAGNESIUM OXIDE. [Concomitant]
     Active Substance: MAGNESIUM OXIDE
  7. EURAX [Concomitant]
     Active Substance: CROTAMITON
     Indication: PRURITUS
  8. CODEINE PHOSPHATE [Concomitant]
     Active Substance: CODEINE PHOSPHATE
  9. MS CONTIN [Suspect]
     Active Substance: MORPHINE SULFATE
     Indication: DYSPNOEA
     Dosage: 20 MG, DAILY
     Route: 048
     Dates: start: 20200602, end: 202006
  10. SENNOSIDE                          /00571901/ [Concomitant]
     Active Substance: SENNOSIDES A AND B
  11. CALONAL [Concomitant]
     Active Substance: ACETAMINOPHEN
     Dosage: UNK
     Dates: end: 20200607
  12. LASIX [Concomitant]
     Active Substance: FUROSEMIDE
     Dosage: UNK
     Dates: end: 20200607
  13. TULOBUTEROL [Concomitant]
     Active Substance: TULOBUTEROL
  14. TRIAZOLAM. [Concomitant]
     Active Substance: TRIAZOLAM
  15. MEDICON                            /00048102/ [Concomitant]
     Active Substance: DEXTROMETHORPHAN HYDROBROMIDE
     Dosage: UNK
     Route: 048
     Dates: end: 20200607
  16. MIYA?BM [Concomitant]
     Active Substance: CLOSTRIDIUM BUTYRICUM SPORES STRAIN M-55
     Dosage: UNK
     Dates: end: 20200607

REACTIONS (6)
  - Irritability [Recovering/Resolving]
  - Hyperglycaemia [Not Recovered/Not Resolved]
  - Mental disorder [Recovering/Resolving]
  - Rash [Recovering/Resolving]
  - Pruritus [Recovering/Resolving]
  - Dysphagia [Unknown]

NARRATIVE: CASE EVENT DATE: 2020
